FAERS Safety Report 9322211 (Version 5)
Quarter: 2014Q1

REPORT INFORMATION
  Report Type: Report from Study
  Country: JP (occurrence: JP)
  Receive Date: 20130531
  Receipt Date: 20140101
  Transmission Date: 20141002
  Serious: Yes (Other)
  Sender: FDA-Public Use
  Company Number: JP-AMGEN-JPNCT2013038648

PATIENT
  Age: 86 Year
  Sex: Male
  Weight: 43 kg

DRUGS (13)
  1. DENOSUMAB [Suspect]
     Indication: METASTASES TO BONE
     Dosage: 120 MG, UNK
     Route: 058
     Dates: start: 20120913, end: 20130307
  2. CALCIUM LACTATE [Concomitant]
     Dosage: UNK
     Route: 048
     Dates: start: 20120913
  3. ALFAROL [Concomitant]
     Dosage: UNK
     Route: 048
     Dates: start: 20120913
  4. LEUPLIN [Concomitant]
     Dosage: UNKNOWN
     Route: 065
     Dates: start: 200604
  5. DOCETAXEL [Concomitant]
     Dosage: 70 MG, QD
     Route: 041
     Dates: start: 20100317, end: 20120711
  6. PREDONINE [Concomitant]
     Dosage: 5 MG, BID
     Route: 048
     Dates: start: 20120512
  7. JANUVIA [Concomitant]
     Dosage: UNK
     Route: 048
     Dates: start: 20120725
  8. GASTER [Concomitant]
     Dosage: UNK
     Route: 048
     Dates: start: 20120512
  9. SUREPOST [Concomitant]
     Dosage: UNK
     Route: 048
     Dates: start: 20121108
  10. TRAMAL [Concomitant]
     Dosage: UNK
     Route: 048
     Dates: start: 20121206
  11. LYRICA [Concomitant]
     Dosage: UNK
     Route: 048
     Dates: start: 20121206
  12. CASODEX [Concomitant]
     Dosage: UNKNOWN
     Route: 065
     Dates: start: 200604, end: 200706
  13. ESTRACYT                           /00327002/ [Concomitant]
     Dosage: UNKNOWN
     Route: 065
     Dates: start: 200706, end: 20100128

REACTIONS (3)
  - Osteonecrosis of jaw [Not Recovered/Not Resolved]
  - Hypocalcaemia [Not Recovered/Not Resolved]
  - Hypophosphataemia [Not Recovered/Not Resolved]
